FAERS Safety Report 17131209 (Version 8)
Quarter: 2021Q3

REPORT INFORMATION
  Report Type: Report from Study
  Country: JP (occurrence: JP)
  Receive Date: 20191209
  Receipt Date: 20210831
  Transmission Date: 20211014
  Serious: Yes (Hospitalization)
  Sender: FDA-Public Use
  Company Number: NVSC2019JP057993

PATIENT
  Age: 47 Year
  Sex: Male
  Weight: 75 kg

DRUGS (19)
  1. PREDNISOLONE. [Concomitant]
     Active Substance: PREDNISOLONE
     Dosage: 20 MG, QD
     Route: 065
     Dates: start: 20191220, end: 20191223
  2. COMPARATOR PEMBROLIZUMAB [Suspect]
     Active Substance: PEMBROLIZUMAB
     Indication: NON-SMALL CELL LUNG CANCER
     Dosage: 200 MG, Q3W
     Route: 042
     Dates: start: 20190731
  3. ILARIS [Suspect]
     Active Substance: CANAKINUMAB
     Indication: NON-SMALL CELL LUNG CANCER
     Dosage: UNK
     Route: 058
     Dates: start: 20190731, end: 20191024
  4. BUTYRIC ACID [Concomitant]
     Active Substance: BUTYRIC ACID
     Indication: PNEUMONIA
     Dosage: UNK
     Route: 065
     Dates: start: 20191120, end: 20191128
  5. SULBACILLIN [Concomitant]
     Active Substance: AMPICILLIN SODIUM\SULBACTAM SODIUM
     Indication: PNEUMONIA
     Dosage: UNK
     Route: 065
     Dates: start: 20191115, end: 20191119
  6. OLOPATADINE HYDROCHLORIDE. [Concomitant]
     Active Substance: OLOPATADINE HYDROCHLORIDE
     Indication: RASH MACULO-PAPULAR
     Dosage: UNK
     Route: 065
     Dates: start: 20191202, end: 20200106
  7. PREDNISOLONE. [Concomitant]
     Active Substance: PREDNISOLONE
     Dosage: 10 MG, QD
     Route: 065
     Dates: start: 20191224
  8. COMPARATOR CARBOPLATIN [Suspect]
     Active Substance: CARBOPLATIN
     Indication: NON-SMALL CELL LUNG CANCER
     Dosage: 879.6  MG, Q3W
     Route: 042
     Dates: start: 20190731
  9. AMOXICILLIN HYDRATE [Concomitant]
     Active Substance: AMOXICILLIN
     Indication: PNEUMONIA
     Dosage: UNK
     Route: 065
     Dates: start: 20191120, end: 20191128
  10. PREDNISOLONE. [Concomitant]
     Active Substance: PREDNISOLONE
     Indication: RASH MACULO-PAPULAR
     Dosage: UNK
     Route: 065
     Dates: start: 20191204, end: 20191209
  11. PREDNISOLONE. [Concomitant]
     Active Substance: PREDNISOLONE
     Dosage: 30 MG, QD
     Route: 065
     Dates: start: 20191213, end: 20191219
  12. SODIUM GUALENATE HYDRATE [Concomitant]
     Active Substance: SODIUM GUALENATE MONOHYDRATE
     Indication: RASH MACULO-PAPULAR
     Dosage: UNK
     Route: 065
     Dates: start: 20191202, end: 20191225
  13. AUGMENTIN [Concomitant]
     Active Substance: AMOXICILLIN\CLAVULANATE POTASSIUM
     Indication: PNEUMONIA
     Dosage: UNK
     Route: 065
     Dates: start: 20191120, end: 20191128
  14. DIFLUPREDNATE [Concomitant]
     Active Substance: DIFLUPREDNATE
     Indication: RASH MACULO-PAPULAR
     Dosage: UNK
     Route: 065
     Dates: start: 20191202, end: 20191203
  15. PREDNISOLONE. [Concomitant]
     Active Substance: PREDNISOLONE
     Dosage: 40 MG, QD
     Route: 065
     Dates: start: 20191210, end: 20191212
  16. SENNOSIDE A+B CALCIUM [Concomitant]
     Active Substance: SENNOSIDES A AND B
     Indication: CONSTIPATION
     Dosage: UNK
     Route: 065
     Dates: start: 20190910, end: 20191206
  17. COMPARATOR NAB PACLITAXEL [Suspect]
     Active Substance: PACLITAXEL
     Indication: NON-SMALL CELL LUNG CANCER
     Dosage: 185.5 MG, QW
     Route: 042
     Dates: start: 20190731
  18. ILARIS [Suspect]
     Active Substance: CANAKINUMAB
     Dosage: UNK
     Route: 058
     Dates: start: 20200107
  19. ESZOPICLONE. [Concomitant]
     Active Substance: ESZOPICLONE
     Indication: INSOMNIA
     Dosage: UNK
     Route: 065
     Dates: start: 20190807, end: 20191224

REACTIONS (1)
  - Adrenal insufficiency [Not Recovered/Not Resolved]

NARRATIVE: CASE EVENT DATE: 20191202
